FAERS Safety Report 9288315 (Version 1)
Quarter: 2013Q2

REPORT INFORMATION
  Report Type: Spontaneous
  Country: BR (occurrence: BR)
  Receive Date: 20130514
  Receipt Date: 20130514
  Transmission Date: 20140414
  Serious: Yes (Hospitalization, Other)
  Sender: FDA-Public Use
  Company Number: BR-PFIZER INC-2013143932

PATIENT
  Age: 89 Year
  Sex: Female
  Weight: 48.5 kg

DRUGS (1)
  1. XALATAN [Suspect]
     Indication: GLAUCOMA
     Dosage: 1.5 UG 1 DROP IN THE RIGHT EYE, UNSPECIFIED FREQUENCY
     Route: 047
     Dates: start: 20081018

REACTIONS (2)
  - Femur fracture [Unknown]
  - Breast cancer [Unknown]
